FAERS Safety Report 7455012-0 (Version None)
Quarter: 2011Q2

REPORT INFORMATION
  Report Type: 
  Country: None (occurrence: None)
  Receive Date: 20110503
  Receipt Date: 20110426
  Transmission Date: 20111010
  Serious: Yes (Other)
  Sender: FDA-Public Use
  Company Number: US-PFIZER INC-2011050506

PATIENT
  Sex: Female

DRUGS (4)
  1. TRAVATAN [Suspect]
     Dosage: UNK
  2. XALATAN [Suspect]
     Indication: OPEN ANGLE GLAUCOMA
     Dosage: UNK, AT NIGHT IN ONE EYE
     Dates: start: 20101101
  3. TIMOLOL [Suspect]
  4. WARFARIN [Suspect]
     Dosage: UNK

REACTIONS (2)
  - VISION BLURRED [None]
  - INTRAOCULAR PRESSURE INCREASED [None]
